FAERS Safety Report 4854524-3 (Version None)
Quarter: 2005Q4

REPORT INFORMATION
  Report Type: 
  Country: None (occurrence: None)
  Receive Date: 20051213
  Receipt Date: 20051201
  Transmission Date: 20060501
  Serious: Yes (Hospitalization, Other)
  Sender: FDA-Public Use
  Company Number: 2005151404

PATIENT
  Age: 9 Year
  Sex: Male
  Weight: 21 kg

DRUGS (5)
  1. GENOTONORM (SOMATROPIN) [Suspect]
     Indication: GROWTH RETARDATION
     Dosage: 1 MG (1 MG DAILY) SUBCUTANEOUS
     Route: 058
     Dates: start: 20040420
  2. CALCIUM CARBONATE [Concomitant]
  3. DRIPTANE (OXYBUTYNIN HYDROCHLORIDE) [Concomitant]
  4. ROCALTROL [Concomitant]
  5. ENALAPRIL MALEATE [Concomitant]

REACTIONS (7)
  - BACTERIAL PYELONEPHRITIS [None]
  - BLADDER DISORDER [None]
  - CALCULUS URETERIC [None]
  - PSEUDOMONAS INFECTION [None]
  - URINARY INCONTINENCE [None]
  - URINARY TRACT INFECTION [None]
  - VESICOURETERIC REFLUX [None]
